FAERS Safety Report 17517128 (Version 1)
Quarter: 2020Q1

REPORT INFORMATION
  Report Type: Spontaneous
  Country: US (occurrence: US)
  Receive Date: 20200309
  Receipt Date: 20200309
  Transmission Date: 20200409
  Serious: No
  Sender: FDA-Public Use
  Company Number: US-ASTRAZENECA-2020SE24203

PATIENT
  Sex: Male

DRUGS (1)
  1. BYETTA [Suspect]
     Active Substance: EXENATIDE
     Indication: TYPE 2 DIABETES MELLITUS
     Dosage: TAKING 60 UNITS OF BYETTA TWICE A DAY
     Route: 065

REACTIONS (3)
  - Overdose [Unknown]
  - Hypoglycaemia [Unknown]
  - Intentional product misuse [Unknown]
